FAERS Safety Report 24860158 (Version 1)
Quarter: 2025Q1

REPORT INFORMATION
  Report Type: Spontaneous
  Country: US (occurrence: US)
  Receive Date: 20250120
  Receipt Date: 20250120
  Transmission Date: 20250408
  Serious: No
  Sender: AMGEN
  Company Number: US-AMGEN-USASP2025007495

PATIENT
  Age: 37 Year

DRUGS (4)
  1. AMJEVITA [Suspect]
     Active Substance: ADALIMUMAB-ATTO
     Indication: Product used for unknown indication
     Route: 065
  2. COSENTYX [Concomitant]
     Active Substance: SECUKINUMAB
  3. ACETAMINOPHEN [Concomitant]
     Active Substance: ACETAMINOPHEN
  4. ERELZI [Concomitant]
     Active Substance: ETANERCEPT-SZZS

REACTIONS (4)
  - Abdominal pain upper [Unknown]
  - Bladder disorder [Unknown]
  - Fatigue [Unknown]
  - Pain [Unknown]
